FAERS Safety Report 5551266-6 (Version None)
Quarter: 2007Q4

REPORT INFORMATION
  Report Type: 
  Country: None (occurrence: None)
  Receive Date: 20071128
  Receipt Date: 20061009
  Transmission Date: 20080405
  Serious: Yes (Other)
  Sender: FDA-Public Use
  Company Number: 2006104307

PATIENT
  Age: 59 Year
  Sex: Female
  Weight: 77.1115 kg

DRUGS (3)
  1. LIPITOR [Suspect]
     Indication: BLOOD CHOLESTEROL INCREASED
     Dosage: 20 MG (20 MG,1 IN 1 D), ORAL
     Route: 048
     Dates: end: 20060101
  2. BISOPROLOL FUMARATE AND HYDROCHLOROTHIAZIDE [Concomitant]
  3. SERTRALINE HYDROCHLORIDE (SERTRALINE) [Concomitant]

REACTIONS (1)
  - AMNESIA [None]
